FAERS Safety Report 18296999 (Version 2)
Quarter: 2020Q4

REPORT INFORMATION
  Report Type: Spontaneous
  Country: FR (occurrence: FR)
  Receive Date: 20200922
  Receipt Date: 20201006
  Transmission Date: 20210113
  Serious: Yes (Death)
  Sender: FDA-Public Use
  Company Number: FR-JNJFOC-20200921569

PATIENT
  Age: 3 Year
  Sex: Male

DRUGS (9)
  1. DILANTIN [Suspect]
     Active Substance: PHENYTOIN
     Indication: STATUS EPILEPTICUS
     Dosage: NR
     Route: 065
     Dates: start: 20181210, end: 20181210
  2. GARDENAL                           /00023201/ [Suspect]
     Active Substance: PHENOBARBITAL
     Indication: STATUS EPILEPTICUS
     Dosage: NR
     Route: 065
     Dates: start: 20181210, end: 20181210
  3. VALIUM [Suspect]
     Active Substance: DIAZEPAM
     Indication: STATUS EPILEPTICUS
     Dosage: NR
     Route: 065
     Dates: start: 20181210, end: 20181210
  4. DEPAKINE                           /00228501/ [Suspect]
     Active Substance: VALPROIC ACID
  5. EPITOMAX [Suspect]
     Active Substance: TOPIRAMATE
     Indication: STATUS EPILEPTICUS
     Dosage: NR
     Route: 065
     Dates: start: 20181210, end: 20181210
  6. MIDAZOLAM HYDROCHLORIDE. [Concomitant]
     Active Substance: MIDAZOLAM HYDROCHLORIDE
     Indication: STATUS EPILEPTICUS
     Dosage: NR
     Route: 065
     Dates: start: 20181210, end: 20181210
  7. LIKOZAM [Suspect]
     Active Substance: CLOBAZAM
     Indication: EPILEPSY
     Route: 048
     Dates: start: 201811
  8. DIACOMIT [Suspect]
     Active Substance: STIRIPENTOL
  9. CANNABIDIOL [Suspect]
     Active Substance: CANNABIDIOL
     Indication: EPILEPSY
     Route: 048
     Dates: start: 201806

REACTIONS (5)
  - Hepatitis fulminant [Fatal]
  - Product use in unapproved indication [Unknown]
  - Status epilepticus [Fatal]
  - Gastrointestinal haemorrhage [Fatal]
  - Off label use [Unknown]

NARRATIVE: CASE EVENT DATE: 20181210
